FAERS Safety Report 16318378 (Version 2)
Quarter: 2019Q2

REPORT INFORMATION
  Report Type: Spontaneous
  Country: US (occurrence: US)
  Receive Date: 20190516
  Receipt Date: 20190618
  Transmission Date: 20190711
  Serious: Yes (Other)
  Sender: FDA-Public Use
  Company Number: US-BAUSCH-BL-2019-014243

PATIENT
  Sex: Male
  Weight: 72.64 kg

DRUGS (2)
  1. SILIQ [Suspect]
     Active Substance: BRODALUMAB
     Route: 058
     Dates: start: 2018, end: 20190509
  2. SILIQ [Suspect]
     Active Substance: BRODALUMAB
     Indication: PSORIASIS
     Dosage: 210MG SUBCUTANEOUSLY ONCE IN ONE WEEK (WEEK 0, 1 AND 2)
     Route: 058
     Dates: start: 20180724, end: 2018

REACTIONS (1)
  - Keratoacanthoma [Not Recovered/Not Resolved]
